FAERS Safety Report 8200082-5 (Version None)
Quarter: 2012Q1

REPORT INFORMATION
  Report Type: 
  Country: None (occurrence: None)
  Receive Date: 20120312
  Receipt Date: 20120308
  Transmission Date: 20120608
  Serious: Yes (Death, Life-Threatening)
  Sender: FDA-Public Use
  Company Number: US-SHIRE-ALL1-2012-00496

PATIENT
  Sex: Male
  Weight: 25.3 kg

DRUGS (7)
  1. MIRALAX                            /00754501/ [Concomitant]
     Indication: CONSTIPATION
     Dosage: 17 G, AS REQ'D
     Route: 048
     Dates: start: 20100314, end: 20100324
  2. LORAZEPAM [Concomitant]
     Indication: ANXIETY
     Dosage: 0.5 MG, AS REQ'D
     Route: 048
     Dates: start: 20100314
  3. DIASTAT [Concomitant]
     Indication: CONVULSION
     Dosage: 5 MG, AS REQ'D
     Route: 054
     Dates: start: 20080511
  4. DIPHENHYDRAMINE HCL [Concomitant]
     Indication: PREMEDICATION
     Dosage: 25 MG, 1X/WEEK
     Route: 042
     Dates: start: 20061108
  5. ROBINUL [Concomitant]
     Indication: SALIVARY HYPERSECRETION
     Dosage: UNK, UNKNOWN
     Route: 065
  6. IDURSULFASE [Suspect]
     Indication: MUCOPOLYSACCHARIDOSIS II
     Dosage: 12 MG, 1X/WEEK
     Route: 041
     Dates: start: 20061108, end: 20111221
  7. KEPPRA [Concomitant]
     Indication: NERVOUS SYSTEM DISORDER
     Dosage: 200 MG, 2X/DAY:BID
     Route: 048
     Dates: start: 20081204

REACTIONS (1)
  - RESPIRATORY FAILURE [None]
